FAERS Safety Report 14927382 (Version 4)
Quarter: 2018Q3

REPORT INFORMATION
  Report Type: Spontaneous
  Country: US (occurrence: US)
  Receive Date: 20180523
  Receipt Date: 20180827
  Transmission Date: 20181010
  Serious: No
  Sender: FDA-Public Use
  Company Number: US-PFIZER INC-2018209825

PATIENT
  Age: 74 Year
  Sex: Male

DRUGS (17)
  1. MIRALAX [Concomitant]
     Active Substance: POLYETHYLENE GLYCOL 3350
     Dosage: 17 G, 1X/DAY (DISSOLVE AS DIRECTED 1 PACKET AND TAKE BY ORAL ROUTE QD AT NOON)
     Route: 048
  2. ALEVE [Concomitant]
     Active Substance: NAPROXEN SODIUM
     Dosage: 220 MG, AS NEEDED
     Route: 048
  3. LEVEMIR [Concomitant]
     Active Substance: INSULIN DETEMIR
     Dosage: 25 IU, 2X/DAY
     Route: 058
     Dates: start: 20180131
  4. LOSARTAN. [Concomitant]
     Active Substance: LOSARTAN
     Dosage: 75 MG, 1X/DAY (TAKE 3 TABLETS)
     Route: 048
     Dates: start: 20180619
  5. OXYCODONE [Concomitant]
     Active Substance: OXYCODONE
     Dosage: UNK UNK, DAILY (TAKE 1?2 TABLETS)
     Route: 048
     Dates: start: 20180724
  6. TAMSULOSIN [Concomitant]
     Active Substance: TAMSULOSIN
     Dosage: 0.4 MG, 1X/DAY (1/2 HOUR FOLLOWING THE SAME MEAL EACH DAY FOR 90 DAYS)
     Route: 048
     Dates: start: 20180702
  7. GABAPENTIN. [Suspect]
     Active Substance: GABAPENTIN
     Dosage: UNK
  8. ACULAR [Concomitant]
     Active Substance: KETOROLAC TROMETHAMINE
     Dosage: 0.25 MG, CYCLIC (LEFT EYE BY OPHTHALMIC ROUTE 4 TIMES PER DAY NOT MORE THAN 7 OF EVERY 14 DAYS)
     Route: 047
     Dates: start: 20180228
  9. KLONOPIN [Concomitant]
     Active Substance: CLONAZEPAM
     Dosage: 0.5 MG, DAILY (FOR 30 DAYS)
     Route: 048
     Dates: start: 20180514
  10. SPIRONOLACTONE. [Concomitant]
     Active Substance: SPIRONOLACTONE
     Dosage: 25 MG, 1X/DAY (FOR 90 DAYS)
     Route: 048
     Dates: start: 20171106
  11. ZOLPIDEM [Concomitant]
     Active Substance: ZOLPIDEM\ZOLPIDEM TARTRATE
     Dosage: 5 MG, 1X/DAY (AT BEDTIME FOR 30 DAYS)
     Route: 048
     Dates: start: 20180514
  12. ATORVASTATIN [Concomitant]
     Active Substance: ATORVASTATIN
     Dosage: 20 MG, 1X/DAY (AT BEDTIME FOR 90 DAYS)
     Route: 048
     Dates: start: 20180702
  13. HUMALOG [Concomitant]
     Active Substance: INSULIN LISPRO
     Indication: TYPE 2 DIABETES MELLITUS
     Dosage: 150 IU, 1X/DAY (24 HRS)
     Route: 058
     Dates: start: 20180109
  14. HUMALOG [Concomitant]
     Active Substance: INSULIN LISPRO
     Dosage: 25 IU, DAILY (1 UNIT/HR)
  15. ANUSOL?HC [Concomitant]
     Indication: HAEMORRHOIDS
     Dosage: 25 MG, AS NEEDED (3 TIMES PER DAY)
     Route: 054
     Dates: start: 20180613
  16. LYRICA [Concomitant]
     Active Substance: PREGABALIN
     Dosage: 100 MG, 3X/DAY (FOR 90 DAYS)
     Route: 048
     Dates: start: 20180727
  17. DICLOFENAC SODIUM. [Concomitant]
     Active Substance: DICLOFENAC SODIUM
     Dosage: 2 G, AS NEEDED (TO THE AFFECTED AREA(S) BY TOPICAL ROUTE 3 TIMES PER DAY)
     Route: 061

REACTIONS (3)
  - Drug hypersensitivity [Unknown]
  - Peripheral swelling [Unknown]
  - Oedema [Recovered/Resolved]
